FAERS Safety Report 20400408 (Version 2)
Quarter: 2022Q1

REPORT INFORMATION
  Report Type: Spontaneous
  Country: US (occurrence: US)
  Receive Date: 20220131
  Receipt Date: 20220201
  Transmission Date: 20220424
  Serious: No
  Sender: FDA-Public Use
  Company Number: US-ABBVIE-21K-163-4043768-00

PATIENT

DRUGS (1)
  1. HUMIRA [Suspect]
     Active Substance: ADALIMUMAB
     Indication: Hidradenitis
     Route: 058
     Dates: start: 201911

REACTIONS (6)
  - Liver injury [Unknown]
  - Feeling abnormal [Unknown]
  - Vision blurred [Unknown]
  - Myalgia [Unknown]
  - Arthralgia [Unknown]
  - Rash [Unknown]
